FAERS Safety Report 20016854 (Version 1)
Quarter: 2021Q4

REPORT INFORMATION
  Report Type: Spontaneous
  Country: US (occurrence: None)
  Receive Date: 20211105
  Receipt Date: 20211105
  Transmission Date: 20220303
  Serious: Yes (Other)
  Sender: FDA-Public Use
  Company Number: None

PATIENT
  Age: 56 Year
  Sex: Female
  Weight: 96.75 kg

DRUGS (6)
  1. PLENVU [Suspect]
     Active Substance: ASCORBIC ACID\POLYETHYLENE GLYCOL 3350\POTASSIUM CHLORIDE\SODIUM ASCORBATE\SODIUM CHLORIDE\SODIUM SU
     Indication: Colonoscopy
     Dosage: OTHER QUANTITY : 3 PACKETS;?OTHER FREQUENCY : 1 PACKET AT 6 PM;?
     Route: 048
     Dates: start: 20211103, end: 20211103
  2. SOTALOL [Concomitant]
     Active Substance: SOTALOL
  3. ELIQUIS [Concomitant]
     Active Substance: APIXABAN
  4. LEXAPRO [Concomitant]
     Active Substance: ESCITALOPRAM OXALATE
  5. LUNESTA [Concomitant]
     Active Substance: ESZOPICLONE
  6. LORAZEPAM [Concomitant]
     Active Substance: LORAZEPAM

REACTIONS (10)
  - Chest discomfort [None]
  - Burning sensation [None]
  - Chills [None]
  - Chills [None]
  - Ocular hyperaemia [None]
  - Eye irritation [None]
  - Vomiting [None]
  - Fatigue [None]
  - Urticaria [None]
  - Paraesthesia [None]

NARRATIVE: CASE EVENT DATE: 20211103
